FAERS Safety Report 23854281 (Version 1)
Quarter: 2024Q2

REPORT INFORMATION
  Report Type: Spontaneous
  Country: AU (occurrence: AU)
  Receive Date: 20240514
  Receipt Date: 20240514
  Transmission Date: 20240716
  Serious: Yes (Death, Other)
  Sender: FDA-Public Use
  Company Number: AU-AMGEN-AUSSP2024091802

PATIENT

DRUGS (2)
  1. CARFILZOMIB [Suspect]
     Active Substance: CARFILZOMIB
     Indication: Plasma cell myeloma refractory
     Dosage: (17 ND PATIENTS RECEIVED CFZ 56 MG/M. OF THE 19 RR PATIENTS, 10 RECEIVED CFZ 27 MG/M^ AND 9 RECEIVED
     Route: 065
  2. DEXAMETHASONE [Concomitant]
     Active Substance: DEXAMETHASONE
     Indication: Plasma cell myeloma refractory
     Dosage: UNK
     Route: 065

REACTIONS (36)
  - Plasma cell myeloma [Fatal]
  - Chronic obstructive pulmonary disease [Fatal]
  - Sepsis [Fatal]
  - Death [Fatal]
  - Seizure [Unknown]
  - Supraventricular extrasystoles [Unknown]
  - Cardiac failure [Unknown]
  - Pulmonary hypertension [Unknown]
  - Plasma cell leukaemia [Unknown]
  - Respiratory failure [Unknown]
  - Thrombocytopenia [Unknown]
  - Atrial fibrillation [Unknown]
  - Chest pain [Unknown]
  - Acute kidney injury [Unknown]
  - Pneumonia [Unknown]
  - Hypertension [Unknown]
  - Anaemia [Unknown]
  - Fatigue [Unknown]
  - Localised oedema [Unknown]
  - Skin infection [Unknown]
  - Palpitations [Unknown]
  - Urinary tract infection [Unknown]
  - Pain [Unknown]
  - Diarrhoea [Unknown]
  - Upper respiratory tract infection [Unknown]
  - Adverse event [Unknown]
  - Nausea [Unknown]
  - Bronchitis [Unknown]
  - Dyspnoea [Unknown]
  - Hyponatraemia [Unknown]
  - Proteinuria [Unknown]
  - Influenza like illness [Unknown]
  - Cardiac disorder [Unknown]
  - Haemolysis [Unknown]
  - Embolism [Unknown]
  - Therapy partial responder [Unknown]
